FAERS Safety Report 6716840-X (Version None)
Quarter: 2010Q2

REPORT INFORMATION
  Report Type: 
  Country: None (occurrence: None)
  Receive Date: 20100510
  Receipt Date: 20100427
  Transmission Date: 20101027
  Serious: Yes (Other)
  Sender: FDA-Public Use
  Company Number: US-JNJFOC-20100407880

PATIENT
  Age: 56 Year
  Sex: Female
  Weight: 78.02 kg

DRUGS (1)
  1. FAST ACTING MYLANTA ORIGINAL [Suspect]
     Indication: DYSPEPSIA
     Route: 048

REACTIONS (3)
  - PRURITUS [None]
  - RESTLESSNESS [None]
  - WHEEZING [None]
